FAERS Safety Report 5384731-5 (Version None)
Quarter: 2007Q3

REPORT INFORMATION
  Report Type: 
  Country: None (occurrence: None)
  Receive Date: 20070711
  Receipt Date: 20070629
  Transmission Date: 20080115
  Serious: Yes (Hospitalization)
  Sender: FDA-Public Use
  Company Number: US-PFIZER INC-2007053933

PATIENT
  Sex: Male
  Weight: 74.8 kg

DRUGS (1)
  1. FELDENE [Suspect]
     Indication: ARTHRALGIA

REACTIONS (2)
  - HYPERHIDROSIS [None]
  - STEVENS-JOHNSON SYNDROME [None]
